FAERS Safety Report 14028217 (Version 4)
Quarter: 2018Q1

REPORT INFORMATION
  Report Type: Report from Study
  Country: None (occurrence: US)
  Receive Date: 20170930
  Receipt Date: 20180307
  Transmission Date: 20180508
  Serious: Yes (Other)
  Sender: FDA-Public Use
  Company Number: US-ABBVIE-17K-163-2116098-00

PATIENT
  Sex: Female
  Weight: 113.5 kg

DRUGS (1)
  1. HUMIRA [Suspect]
     Active Substance: ADALIMUMAB
     Indication: RHEUMATOID ARTHRITIS
     Route: 058
     Dates: start: 201508

REACTIONS (6)
  - Arthralgia [Recovering/Resolving]
  - Muscular weakness [Unknown]
  - Musculoskeletal stiffness [Unknown]
  - Lymphadenopathy [Unknown]
  - Joint stiffness [Unknown]
  - Pain in extremity [Not Recovered/Not Resolved]
